FAERS Safety Report 8342397-6 (Version None)
Quarter: 2012Q2

REPORT INFORMATION
  Report Type: 
  Country: None (occurrence: None)
  Receive Date: 20120508
  Receipt Date: 20120425
  Transmission Date: 20120825
  Serious: No
  Sender: FDA-Public Use
  Company Number: US-BIOGENIDEC-2011BI037316

PATIENT
  Sex: Female

DRUGS (4)
  1. METFORMIN HCL [Concomitant]
     Indication: TYPE 2 DIABETES MELLITUS
  2. IRON SUPPLEMENTS [Concomitant]
     Indication: ANAEMIA
  3. TYSABRI [Suspect]
     Indication: MULTIPLE SCLEROSIS
     Route: 042
     Dates: start: 20070814
  4. REBIF [Concomitant]
     Indication: MULTIPLE SCLEROSIS

REACTIONS (12)
  - TEMPERATURE INTOLERANCE [None]
  - MULTIPLE SCLEROSIS RELAPSE [None]
  - HEAT ILLNESS [None]
  - DYSGEUSIA [None]
  - FATIGUE [None]
  - VOMITING [None]
  - MIGRAINE [None]
  - DEPRESSION [None]
  - COELIAC DISEASE [None]
  - DECREASED APPETITE [None]
  - PAROSMIA [None]
  - ASTHENIA [None]
